FAERS Safety Report 11815015 (Version 1)
Quarter: 2015Q4

REPORT INFORMATION
  Report Type: Spontaneous
  Country: US (occurrence: US)
  Receive Date: 20151209
  Receipt Date: 20151209
  Transmission Date: 20160305
  Serious: No
  Sender: FDA-Public Use
  Company Number: US-SA-2015SA152008

PATIENT
  Sex: Female

DRUGS (4)
  1. LANTUS SOLOSTAR [Suspect]
     Active Substance: INSULIN GLARGINE
     Indication: DIABETES MELLITUS
     Dosage: UNITS 20 MORNING AND 20 IN THE EVENING DOSE:20 UNIT(S)
     Route: 065
     Dates: start: 20150925
  2. SOLOSTAR [Concomitant]
     Active Substance: DEVICE
     Dates: start: 20150925
  3. SOLOSTAR [Concomitant]
     Active Substance: DEVICE
  4. TOUJEO [Suspect]
     Active Substance: INSULIN GLARGINE
     Indication: DIABETES MELLITUS
     Route: 065

REACTIONS (8)
  - Limb discomfort [Unknown]
  - Musculoskeletal stiffness [Unknown]
  - Drug administration error [Unknown]
  - Mobility decreased [Unknown]
  - Insomnia [Unknown]
  - Pain [Unknown]
  - Gait disturbance [Unknown]
  - Peripheral swelling [Unknown]

NARRATIVE: CASE EVENT DATE: 20150925
